FAERS Safety Report 4629280-4 (Version None)
Quarter: 2005Q2

REPORT INFORMATION
  Report Type: 
  Country: None (occurrence: None)
  Receive Date: 20050404
  Receipt Date: 20050404
  Transmission Date: 20051028
  Serious: Yes (Life-Threatening, Hospitalization)
  Sender: FDA-Public Use
  Company Number: None

PATIENT
  Age: 53 Year
  Sex: Female
  Weight: 84.369 kg

DRUGS (2)
  1. ESKALITH [Suspect]
     Indication: BIPOLAR DISORDER
     Dosage: 900 MG BID
     Dates: start: 20050303, end: 20050311
  2. LISINOPRIL [Concomitant]
     Indication: HYPERTENSION
     Dosage: 5 MG QD
     Dates: start: 20050305, end: 20050311

REACTIONS (8)
  - BLOOD GLUCOSE DECREASED [None]
  - DEPRESSED LEVEL OF CONSCIOUSNESS [None]
  - DRUG INTERACTION [None]
  - DRUG LEVEL INCREASED [None]
  - ENCEPHALOPATHY [None]
  - MENTAL STATUS CHANGES [None]
  - MOVEMENT DISORDER [None]
  - URINARY TRACT INFECTION [None]
